FAERS Safety Report 13638141 (Version 1)
Quarter: 2017Q2

REPORT INFORMATION
  Report Type: Spontaneous
  Country: FR (occurrence: FR)
  Receive Date: 20170609
  Receipt Date: 20170609
  Transmission Date: 20170830
  Serious: Yes (Hospitalization, Other)
  Sender: FDA-Public Use
  Company Number: FR-MYLANLABS-2017M1034617

PATIENT

DRUGS (1)
  1. FONDAPARINUX [Suspect]
     Active Substance: FONDAPARINUX
     Indication: PAIN IN EXTREMITY
     Dosage: 1 DF, QD (1 DOSAGE FORMS, 1 IN 1)
     Route: 058
     Dates: start: 20170509, end: 20170517

REACTIONS (3)
  - Retroperitoneal haematoma [Not Recovered/Not Resolved]
  - Off label use [Unknown]
  - Haemorrhagic anaemia [Not Recovered/Not Resolved]

NARRATIVE: CASE EVENT DATE: 20170517
